FAERS Safety Report 7098215-X (Version None)
Quarter: 2010Q4

REPORT INFORMATION
  Report Type: 
  Country: None (occurrence: None)
  Receive Date: 20101112
  Receipt Date: 20101102
  Transmission Date: 20110411
  Serious: Yes (Death, Hospitalization, Other)
  Sender: FDA-Public Use
  Company Number: JP-SANOFI-AVENTIS-2010SA032282

PATIENT
  Age: 71 Year
  Sex: Male
  Weight: 46.5 kg

DRUGS (6)
  1. TAXOTERE [Suspect]
     Indication: NON-SMALL CELL LUNG CANCER
     Route: 041
     Dates: start: 20070509, end: 20070613
  2. PARIET [Concomitant]
     Indication: GASTRIC ULCER
     Route: 048
     Dates: start: 20070328, end: 20070704
  3. MARZULENE [Concomitant]
     Indication: GASTRITIS
     Route: 048
     Dates: start: 20070316, end: 20070704
  4. DEPAS [Concomitant]
     Indication: PSYCHOSOMATIC DISEASE
     Route: 048
     Dates: start: 20070605, end: 20070704
  5. ZYRTEC [Concomitant]
     Indication: DERMATITIS
     Route: 048
     Dates: start: 20070612, end: 20070704
  6. MAGNESIUM OXIDE [Concomitant]
     Indication: CONSTIPATION
     Route: 048
     Dates: start: 20070402, end: 20070704

REACTIONS (3)
  - INTERSTITIAL LUNG DISEASE [None]
  - PANCREATITIS [None]
  - PNEUMONIA [None]
